FAERS Safety Report 8927390 (Version 1)
Quarter: 2012Q4

REPORT INFORMATION
  Report Type: 
  Country: IN (occurrence: IN)
  Receive Date: 20121127
  Receipt Date: 20121127
  Transmission Date: 20130627
  Serious: Yes (Death, Hospitalization)
  Sender: FDA-Public Use
  Company Number: PHHY2012IN107949

PATIENT
  Age: 51 Year
  Sex: Female

DRUGS (3)
  1. FEMARA [Suspect]
     Indication: BREAST CANCER
     Dosage: 2.5 mg, every day
     Route: 048
     Dates: start: 20120210, end: 20121025
  2. TAZLOC H [Concomitant]
     Indication: HYPERTENSION
     Dosage: UNK UKN, UNK
  3. GLICONORM [Concomitant]
     Indication: DIABETES MELLITUS
     Dosage: UNK UKN, UNK

REACTIONS (1)
  - Bone pain [Fatal]
